FAERS Safety Report 21007844 (Version 2)
Quarter: 2022Q3

REPORT INFORMATION
  Report Type: Spontaneous
  Country: CZ (occurrence: CZ)
  Receive Date: 20220627
  Receipt Date: 20220714
  Transmission Date: 20221027
  Serious: Yes (Hospitalization, Other)
  Sender: FDA-Public Use
  Company Number: CZ-BoehringerIngelheim-2022-BI-178001

PATIENT
  Age: 18 Year
  Sex: Male

DRUGS (1)
  1. DABIGATRAN [Suspect]
     Active Substance: DABIGATRAN
     Indication: Deep vein thrombosis

REACTIONS (3)
  - Peripheral swelling [Recovered/Resolved]
  - Venous thrombosis [Recovered/Resolved]
  - Peripheral swelling [Recovered/Resolved]
